FAERS Safety Report 16140218 (Version 1)
Quarter: 2019Q1

REPORT INFORMATION
  Report Type: Spontaneous
  Country: US (occurrence: US)
  Receive Date: 20190331
  Receipt Date: 20190331
  Transmission Date: 20190418
  Serious: No
  Sender: FDA-Public Use
  Company Number: US-JNJFOC-20190313442

PATIENT
  Age: 64 Year
  Sex: Female
  Weight: 47.63 kg

DRUGS (1)
  1. STELARA [Suspect]
     Active Substance: USTEKINUMAB
     Indication: CROHN^S DISEASE
     Route: 058
     Dates: start: 2014

REACTIONS (4)
  - Product storage error [Unknown]
  - Product dose omission [Unknown]
  - Road traffic accident [Unknown]
  - Stress [Unknown]

NARRATIVE: CASE EVENT DATE: 20190308
